FAERS Safety Report 11882299 (Version 1)
Quarter: 2015Q4

REPORT INFORMATION
  Report Type: Spontaneous
  Country: US (occurrence: None)
  Receive Date: 20151230
  Receipt Date: 20151230
  Transmission Date: 20160305
  Serious: Yes (Hospitalization)
  Sender: FDA-Public Use
  Company Number: None

PATIENT
  Age: 63 Year
  Sex: Male
  Weight: 77.3 kg

DRUGS (1)
  1. AMIODARONE [Suspect]
     Active Substance: AMIODARONE
     Indication: ATRIAL FIBRILLATION
     Route: 048
     Dates: start: 20151028, end: 20151225

REACTIONS (4)
  - Atrial fibrillation [None]
  - Hepatotoxicity [None]
  - Ischaemic hepatitis [None]
  - Hepatic enzyme increased [None]

NARRATIVE: CASE EVENT DATE: 20151227
